FAERS Safety Report 12998668 (Version 1)
Quarter: 2016Q4

REPORT INFORMATION
  Report Type: Spontaneous
  Country: US (occurrence: US)
  Receive Date: 20161204
  Receipt Date: 20161204
  Transmission Date: 20170207
  Serious: Yes (Other)
  Sender: FDA-Public Use
  Company Number: None

PATIENT
  Age: 25 Year
  Sex: Female
  Weight: 67.5 kg

DRUGS (5)
  1. SEROQUEL XR [Suspect]
     Active Substance: QUETIAPINE FUMARATE
     Indication: MOOD SWINGS
     Dosage: 30 TABLET(S) ORAL 1-4 AT BEDTIME?
     Route: 048
     Dates: start: 20140101
  2. SEROQUEL XR [Suspect]
     Active Substance: QUETIAPINE FUMARATE
     Indication: SLEEP DISORDER
     Dosage: 30 TABLET(S) ORAL 1-4 AT BEDTIME?
     Route: 048
     Dates: start: 20140101
  3. XANAX [Concomitant]
     Active Substance: ALPRAZOLAM
  4. LEXIPRO [Concomitant]
  5. SEROQUEL XR [Suspect]
     Active Substance: QUETIAPINE FUMARATE
     Indication: ANXIETY
     Dosage: 30 TABLET(S) ORAL 1-4 AT BEDTIME?
     Route: 048
     Dates: start: 20140101

REACTIONS (1)
  - Sleep terror [None]
